FAERS Safety Report 14336061 (Version 8)
Quarter: 2019Q2

REPORT INFORMATION
  Report Type: Report from Study
  Country: US (occurrence: US)
  Receive Date: 20171229
  Receipt Date: 20190514
  Transmission Date: 20190711
  Serious: Yes (Hospitalization)
  Sender: FDA-Public Use
  Company Number: PHHO2017US017328

PATIENT
  Age: 76 Year
  Sex: Male
  Weight: 84.73 kg

DRUGS (2)
  1. DOCETAXEL. [Suspect]
     Active Substance: DOCETAXEL
     Indication: HORMONE-REFRACTORY PROSTATE CANCER
     Dosage: 75 MG/M2, Q3W
     Route: 042
     Dates: start: 20151215
  2. KISQALI [Suspect]
     Active Substance: RIBOCICLIB
     Indication: HORMONE-REFRACTORY PROSTATE CANCER
     Dosage: 200 MG, QD
     Route: 048
     Dates: start: 20151216, end: 20151222

REACTIONS (3)
  - Haemorrhage intracranial [Recovered/Resolved]
  - Subdural haematoma [Recovered/Resolved]
  - Seizure [Recovered/Resolved]

NARRATIVE: CASE EVENT DATE: 20151222
